FAERS Safety Report 18259017 (Version 3)
Quarter: 2021Q4

REPORT INFORMATION
  Report Type: Report from Study
  Country: CA (occurrence: CA)
  Receive Date: 20200911
  Receipt Date: 20211208
  Transmission Date: 20220303
  Serious: Yes (Other)
  Sender: FDA-Public Use
  Company Number: CA-JNJFOC-20200519885

PATIENT
  Age: 12 Year
  Sex: Female
  Weight: 44 kg

DRUGS (4)
  1. REMICADE [Suspect]
     Active Substance: INFLIXIMAB
     Indication: Crohn^s disease
     Dosage: THE PATIENT RECEIVED 8TH 500 MG INFLIXIMAB INFUSION ON 04-JUN-2020
     Route: 042
     Dates: start: 20190925
  2. REMICADE [Suspect]
     Active Substance: INFLIXIMAB
     Dosage: REINDUCTION
     Route: 042
  3. REMICADE [Suspect]
     Active Substance: INFLIXIMAB
     Route: 042
  4. REMICADE [Suspect]
     Active Substance: INFLIXIMAB
     Route: 042

REACTIONS (6)
  - Crohn^s disease [Unknown]
  - Lip oedema [Unknown]
  - Rash [Unknown]
  - Synovial cyst [Unknown]
  - Off label use [Unknown]
  - Product use issue [Unknown]

NARRATIVE: CASE EVENT DATE: 20190925
